FAERS Safety Report 17662062 (Version 1)
Quarter: 2020Q2

REPORT INFORMATION
  Report Type: Spontaneous
  Country: US (occurrence: US)
  Receive Date: 20200413
  Receipt Date: 20200413
  Transmission Date: 20200713
  Serious: No
  Sender: FDA-Public Use
  Company Number: US-UPSHER-SMITH LABORATORIES, LLC-2019USL00260

PATIENT
  Age: 16 Year
  Sex: Female
  Weight: 69 kg

DRUGS (10)
  1. LORATADINE. [Concomitant]
     Active Substance: LORATADINE
  2. ZOFRAN [Concomitant]
     Active Substance: ONDANSETRON HYDROCHLORIDE
  3. QUDEXY XR [Suspect]
     Active Substance: TOPIRAMATE
     Indication: HEADACHE
  4. QUDEXY XR [Suspect]
     Active Substance: TOPIRAMATE
     Indication: HEADACHE
  5. QUDEXY XR [Suspect]
     Active Substance: TOPIRAMATE
     Indication: MIGRAINE
     Dosage: 25 MG, 1X/DAY
     Route: 048
     Dates: start: 20190109, end: 20190115
  6. IMITREX [Concomitant]
     Active Substance: SUMATRIPTAN SUCCINATE
  7. MAGNESIUM [Concomitant]
     Active Substance: MAGNESIUM
  8. QUDEXY XR [Suspect]
     Active Substance: TOPIRAMATE
     Indication: MIGRAINE
     Dosage: 50 MG, 1X/DAY
     Route: 048
     Dates: start: 20190116, end: 201902
  9. ALEVE [Concomitant]
     Active Substance: NAPROXEN SODIUM
  10. MELATONIN [Concomitant]
     Active Substance: MELATONIN

REACTIONS (1)
  - Metrorrhagia [Recovered/Resolved]

NARRATIVE: CASE EVENT DATE: 201902
